FAERS Safety Report 15242068 (Version 1)
Quarter: 2018Q3

REPORT INFORMATION
  Report Type: Other
  Country: GB (occurrence: GB)
  Receive Date: 20180806
  Receipt Date: 20180806
  Transmission Date: 20181010
  Serious: Yes (Other)
  Sender: FDA-Public Use
  Company Number: GB-LUPIN PHARMACEUTICALS INC.-2017-07167

PATIENT

DRUGS (1)
  1. LEVETIRACETAM. [Suspect]
     Active Substance: LEVETIRACETAM
     Indication: PRODUCT USED FOR UNKNOWN INDICATION
     Dosage: 4000 MG, QD
     Route: 065

REACTIONS (4)
  - Seizure [Unknown]
  - Adverse drug reaction [Unknown]
  - Overdose [Unknown]
  - Drug ineffective [Unknown]
